FAERS Safety Report 9399804 (Version 3)
Quarter: 2013Q3

REPORT INFORMATION
  Report Type: Report from Study
  Country: IE (occurrence: IE)
  Receive Date: 20130715
  Receipt Date: 20130910
  Transmission Date: 20140515
  Serious: Yes (Death, Hospitalization)
  Sender: FDA-Public Use
  Company Number: PHHO2013IE008846

PATIENT
  Age: 74 Year
  Sex: Male
  Weight: 78.3 kg

DRUGS (12)
  1. DIGOXIN [Suspect]
     Dosage: 0.25 MG, UNK
  2. ALISKIREN [Suspect]
     Indication: CARDIAC FAILURE
     Route: 048
     Dates: start: 20091209, end: 20100330
  3. ENALAPRIL [Suspect]
     Indication: CARDIAC FAILURE
     Dates: start: 20091209, end: 20100330
  4. LYRICA [Concomitant]
     Indication: ANALGESIC THERAPY
     Dosage: 75 MG, BID
  5. SIMVASTATIN [Concomitant]
     Dosage: 20 MG, QD
  6. ASPIRIN [Concomitant]
     Dosage: 75 MG, QD
  7. SPIRONOLACTONE [Concomitant]
     Indication: CARDIAC FAILURE
     Dosage: 12.5 MG, QD
  8. BISOPROLOL [Concomitant]
     Indication: CARDIAC FAILURE
     Dosage: 2.5 MG, QD
  9. OMACOR [Concomitant]
     Indication: CARDIAC FAILURE
     Dosage: 1 G, QD
  10. PANTOPRAZOLE [Concomitant]
     Indication: PROPHYLAXIS
     Dosage: 40 MG, QD
  11. COLCHICINE [Concomitant]
     Indication: ANALGESIC THERAPY
     Dosage: 0.5 MG, QD
  12. QUININE [Concomitant]
     Indication: MUSCLE SPASMS
     Dosage: 300 MG, ^NODE^

REACTIONS (4)
  - Toxicity to various agents [Fatal]
  - Cardiac failure chronic [Fatal]
  - Renal failure [Fatal]
  - Ischaemic cardiomyopathy [Fatal]
